FAERS Safety Report 9659611 (Version 2)
Quarter: 2014Q1

REPORT INFORMATION
  Report Type: Spontaneous
  Country: GB (occurrence: GB)
  Receive Date: 20131031
  Receipt Date: 20140324
  Transmission Date: 20141002
  Serious: Yes (Other)
  Sender: FDA-Public Use
  Company Number: GB-DRREDDYS-GER/UKI/13/0035121

PATIENT
  Age: 16 Year
  Sex: Female

DRUGS (5)
  1. OLANZAPINE [Suspect]
     Indication: MAJOR DEPRESSION
  2. OLANZAPINE [Suspect]
     Indication: PSYCHOTIC DISORDER
  3. OLANZAPINE [Suspect]
     Indication: AUTISM SPECTRUM DISORDER
  4. OLANZAPINE [Suspect]
     Indication: POST-TRAUMATIC STRESS DISORDER
  5. OLANZAPINE [Suspect]
     Indication: MAJOR DEPRESSION

REACTIONS (4)
  - Drug ineffective [Unknown]
  - Hallucination, auditory [Recovered/Resolved]
  - Convulsion [Unknown]
  - Off label use [Unknown]
